FAERS Safety Report 5383233-X (Version None)
Quarter: 2007Q3

REPORT INFORMATION
  Report Type: 
  Country: None (occurrence: None)
  Receive Date: 20070705
  Receipt Date: 20070620
  Transmission Date: 20080115
  Serious: Yes (Other)
  Sender: FDA-Public Use
  Company Number: 2007JP001997

PATIENT
  Age: 32 Year
  Sex: Female

DRUGS (8)
  1. PROGRAF [Suspect]
     Indication: RENAL TRANSPLANT
  2. ENDOXAN(CYCLOPHOSPHAMIDE) FORMULATION UNKNOWN [Suspect]
     Indication: RENAL TRANSPLANT
  3. MYCOPHENOLATE MOFETIL [Concomitant]
  4. PREDNISONE (PREDNISONE) FORMULATION UNKNOWN [Concomitant]
  5. BASILIXIMAB (BASILIXIMAB) FORMULATION UNKNOWN [Concomitant]
  6. ANTIBIOTICS FORMULATION UNKNOWN [Concomitant]
  7. ANTIFUNGALS FORMULATION UNKNOWN [Concomitant]
  8. ANTIVIRALS NOS FORMULATION UNKNOWN [Concomitant]

REACTIONS (6)
  - CYTOMEGALOVIRUS ANTIGEN POSITIVE [None]
  - GLYCOSYLATED HAEMOGLOBIN INCREASED [None]
  - PANCREATIC LEAK [None]
  - PANCYTOPENIA [None]
  - RENAL IMPAIRMENT [None]
  - URINARY INCONTINENCE [None]
